FAERS Safety Report 4918605-8 (Version None)
Quarter: 2006Q1

REPORT INFORMATION
  Report Type: 
  Country: None (occurrence: None)
  Receive Date: 20060221
  Receipt Date: 20060221
  Transmission Date: 20060701
  Serious: Yes (Other)
  Sender: FDA-Public Use
  Company Number: None

PATIENT
  Sex: Female
  Weight: 92.0802 kg

DRUGS (1)
  1. TOPAMAX [Suspect]
     Indication: HEADACHE
     Dosage: 50MG  BID   PO
     Route: 048
     Dates: start: 20060120, end: 20060202

REACTIONS (2)
  - MYOPIA [None]
  - VISUAL ACUITY REDUCED [None]
